FAERS Safety Report 4294035-X (Version None)
Quarter: 2004Q1

REPORT INFORMATION
  Report Type: 
  Country: None (occurrence: None)
  Receive Date: 20040211
  Receipt Date: 20040126
  Transmission Date: 20041129
  Serious: Yes (Other)
  Sender: FDA-Public Use
  Company Number: USA040157456

PATIENT
  Age: 47 Year
  Sex: Female
  Weight: 123 kg

DRUGS (3)
  1. HUMULIN N [Suspect]
     Dosage: 45 U/DAY
     Dates: start: 19990101
  2. HUMULIN R [Suspect]
  3. GLIPIZIDE [Concomitant]

REACTIONS (4)
  - BLOOD GLUCOSE INCREASED [None]
  - EMPHYSEMA [None]
  - INFLUENZA [None]
  - PHARMACEUTICAL PRODUCT COMPLAINT [None]
